FAERS Safety Report 10086342 (Version 1)
Quarter: 2014Q2

REPORT INFORMATION
  Report Type: Spontaneous
  Country: US (occurrence: None)
  Receive Date: 20140417
  Receipt Date: 20140417
  Transmission Date: 20141212
  Serious: No
  Sender: FDA-Public Use
  Company Number: None

PATIENT
  Age: 71 Year
  Sex: Female
  Weight: 147 kg

DRUGS (1)
  1. ETHAMBUTOL [Suspect]
     Indication: LUNG INFECTION
     Dosage: 2TIMES DAILY TWICE DAILY??TRY 3 X TO TAKE CANNOT TAKE

REACTIONS (3)
  - Vomiting [None]
  - Dizziness [None]
  - Influenza like illness [None]
